FAERS Safety Report 11317165 (Version 1)
Quarter: 2015Q3

REPORT INFORMATION
  Report Type: Spontaneous
  Country: US (occurrence: US)
  Receive Date: 20150728
  Receipt Date: 20150728
  Transmission Date: 20151125
  Serious: Yes (Other)
  Sender: FDA-Public Use
  Company Number: US-CELGENEUS-USA-2015073416

PATIENT
  Sex: Female

DRUGS (2)
  1. THALOMID [Suspect]
     Active Substance: THALIDOMIDE
     Indication: UTERINE CANCER
     Route: 048
     Dates: start: 20150409
  2. THALOMID [Suspect]
     Active Substance: THALIDOMIDE
     Indication: OFF LABEL USE
     Route: 048
     Dates: start: 201506

REACTIONS (1)
  - Uterine cancer [Not Recovered/Not Resolved]

NARRATIVE: CASE EVENT DATE: 2015
